FAERS Safety Report 5165601-4 (Version None)
Quarter: 2006Q4

REPORT INFORMATION
  Report Type: 
  Country: None (occurrence: None)
  Receive Date: 20061124
  Receipt Date: 20061110
  Transmission Date: 20070319
  Serious: Yes (Hospitalization)
  Sender: FDA-Public Use
  Company Number: 2006139295

PATIENT
  Sex: Male

DRUGS (2)
  1. DIFLUCAN [Suspect]
     Indication: ORAL CANDIDIASIS
     Dosage: 50 MG (50 MG), ORAL
     Route: 048
     Dates: start: 20060515, end: 20060519
  2. TEMOZOLOMIDE (TEMOZOLOMIDE) [Suspect]
     Indication: CHEMOTHERAPY
     Dosage: 100 MG (100 MG, /), ORAL
     Route: 048
     Dates: start: 20060406, end: 20060519

REACTIONS (5)
  - HYPOPROTEINAEMIA [None]
  - JAUNDICE [None]
  - MIXED HEPATOCELLULAR-CHOLESTATIC INJURY [None]
  - NAUSEA [None]
  - ORAL CANDIDIASIS [None]
